FAERS Safety Report 14467969 (Version 2)
Quarter: 2018Q1

REPORT INFORMATION
  Report Type: Spontaneous
  Country: US (occurrence: US)
  Receive Date: 20180131
  Receipt Date: 20180322
  Transmission Date: 20180509
  Serious: Yes (Other)
  Sender: FDA-Public Use
  Company Number: US-PFIZER INC-2018036636

PATIENT
  Age: 82 Year
  Sex: Female
  Weight: 56 kg

DRUGS (2)
  1. AROMASIN [Suspect]
     Active Substance: EXEMESTANE
     Indication: BREAST CANCER
     Dosage: UNK
     Dates: start: 201801, end: 20180201
  2. AROMASIN [Suspect]
     Active Substance: EXEMESTANE
     Indication: BREAST MASS
     Dosage: 25 MG, 1X/DAY, (IN THE EVENING)
     Route: 048
     Dates: start: 20170316

REACTIONS (1)
  - Dyspnoea [Recovering/Resolving]

NARRATIVE: CASE EVENT DATE: 201703
